FAERS Safety Report 4310891-0 (Version None)
Quarter: 2004Q1

REPORT INFORMATION
  Report Type: 
  Country: None (occurrence: None)
  Receive Date: 20040302
  Receipt Date: 20040219
  Transmission Date: 20041129
  Serious: Yes (Hospitalization)
  Sender: FDA-Public Use
  Company Number: 2004011332

PATIENT
  Age: 74 Year
  Sex: Female

DRUGS (2)
  1. CARDENALIN (DOXAZOSIN) [Suspect]
     Indication: HYPERTENSION
     Dosage: 2 MG, ORAL
     Route: 048
     Dates: start: 20040218
  2. ACETOHEXAMIDE (ACETOHEXAMIDE) [Concomitant]

REACTIONS (1)
  - DEPRESSED LEVEL OF CONSCIOUSNESS [None]
